FAERS Safety Report 24695289 (Version 1)
Quarter: 2024Q4

REPORT INFORMATION
  Report Type: Spontaneous
  Country: US (occurrence: None)
  Receive Date: 20241204
  Receipt Date: 20241204
  Transmission Date: 20250114
  Serious: Yes (Life-Threatening, Hospitalization)
  Sender: Public
  Company Number: None

PATIENT
  Age: 16 Year
  Sex: Female

DRUGS (3)
  1. TALTZ [Suspect]
     Active Substance: IXEKIZUMAB
     Dosage: OTHER FREQUENCY : MONTHLY;?
     Route: 058
     Dates: end: 20240801
  2. ADALIMUMAB [Suspect]
     Active Substance: ADALIMUMAB
  3. PREDNISONE [Suspect]
     Active Substance: PREDNISONE

REACTIONS (4)
  - Crohn^s disease [None]
  - Inflammation [None]
  - Large intestine perforation [None]
  - Sepsis [None]

NARRATIVE: CASE EVENT DATE: 20240805
